FAERS Safety Report 7233292-4 (Version None)
Quarter: 2011Q1

REPORT INFORMATION
  Report Type: 
  Country: None (occurrence: None)
  Receive Date: 20110119
  Receipt Date: 20110111
  Transmission Date: 20110831
  Serious: Yes (Hospitalization)
  Sender: FDA-Public Use
  Company Number: JP-ROCHE-645664

PATIENT
  Sex: Female
  Weight: 75 kg

DRUGS (32)
  1. PREDNISOLONE [Suspect]
     Indication: RHEUMATOID ARTHRITIS
     Dosage: DOSE FORM : PERORAL AGENT.
     Route: 048
     Dates: end: 20090907
  2. PREDNISOLONE [Suspect]
     Dosage: FORM: PERORAL AGENT.
     Route: 048
     Dates: start: 20091030, end: 20091123
  3. PROGRAFT [Concomitant]
     Route: 048
  4. TOLEDOMIN [Concomitant]
     Route: 048
  5. RESLIN [Concomitant]
     Route: 048
  6. KETOPROFEN [Concomitant]
     Dosage: DOSE FORM TAPE
     Route: 061
  7. TOCILIZUMAB [Suspect]
     Route: 041
     Dates: start: 20090811, end: 20090811
  8. TOCILIZUMAB [Suspect]
     Route: 041
     Dates: start: 20091005, end: 20091005
  9. TOCILIZUMAB [Suspect]
     Route: 041
     Dates: start: 20091030, end: 20091030
  10. TOCILIZUMAB [Suspect]
     Route: 041
     Dates: start: 20091222
  11. LOXONIN [Suspect]
     Indication: RHEUMATOID ARTHRITIS
     Dosage: DOSE FORM : PERORAL AGENT.
     Route: 048
  12. CALONAL [Concomitant]
     Dosage: FORM: PERORAL AGENT.
     Route: 048
  13. TOCILIZUMAB [Suspect]
     Route: 041
     Dates: start: 20090908, end: 20090908
  14. PREDNISOLONE [Suspect]
     Dosage: FORM: PERORAL AGENT.
     Route: 048
     Dates: start: 20090908, end: 20091004
  15. CYTOTEC [Concomitant]
     Route: 048
  16. FOSAMAX [Concomitant]
     Dosage: DRUG NAME REPORTED AS FOSAMAC 35 MG
     Route: 048
  17. BUFFERIN [Suspect]
     Indication: ANGINA PECTORIS
     Route: 048
  18. TAKEPRON [Suspect]
     Indication: REFLUX OESOPHAGITIS
     Route: 048
  19. PREDNISOLONE [Suspect]
     Dosage: FORM: PERORAL AGENT.
     Route: 048
     Dates: start: 20091005, end: 20091029
  20. BREDININ [Concomitant]
     Route: 048
  21. NEUROTROPIN [Concomitant]
     Route: 048
  22. GABAPENTIN [Concomitant]
     Route: 048
  23. ISCOTIN [Concomitant]
     Route: 048
  24. PYDOXAL [Concomitant]
     Route: 048
  25. URSO 250 [Concomitant]
     Dosage: FORM: PERORAL AGENT.
     Route: 048
  26. CONIEL [Concomitant]
     Route: 048
  27. TOCILIZUMAB [Suspect]
     Route: 041
     Dates: start: 20091124, end: 20091124
  28. RIVOTRIL [Concomitant]
     Route: 048
  29. TOCILIZUMAB [Suspect]
     Indication: RHEUMATOID ARTHRITIS
     Route: 041
     Dates: start: 20090706, end: 20090706
  30. PREDNISOLONE [Suspect]
     Route: 048
     Dates: start: 20091124
  31. HOCHU-EKKI-TO [Concomitant]
     Dosage: FORM: PERORAL AGENT.
     Route: 048
  32. GANATON [Concomitant]
     Route: 048

REACTIONS (1)
  - MELAENA [None]
